FAERS Safety Report 4974697-1 (Version None)
Quarter: 2006Q2

REPORT INFORMATION
  Report Type: 
  Country: None (occurrence: None)
  Receive Date: 20060417
  Receipt Date: 20050829
  Transmission Date: 20061013
  Serious: Yes (Hospitalization)
  Sender: FDA-Public Use
  Company Number: US-MERCK-0508USA04660

PATIENT
  Age: 63 Year
  Sex: Male
  Weight: 72 kg

DRUGS (5)
  1. VIOXX [Suspect]
     Indication: ARTHRITIS
     Route: 048
     Dates: start: 20040101, end: 20040909
  2. PRILOSEC [Concomitant]
     Route: 048
  3. GLUCOVANCE [Concomitant]
     Route: 065
  4. LIPITOR [Concomitant]
     Route: 065
  5. METOPROLOL [Concomitant]
     Route: 065

REACTIONS (9)
  - ARTERIOSCLEROSIS CORONARY ARTERY [None]
  - BRAIN STEM THROMBOSIS [None]
  - CEREBROVASCULAR ACCIDENT [None]
  - CHEST PAIN [None]
  - INJURY [None]
  - PROCEDURAL COMPLICATION [None]
  - RESPIRATORY ARREST [None]
  - THERAPY NON-RESPONDER [None]
  - VENTRICULAR DYSFUNCTION [None]
